FAERS Safety Report 6584172-9 (Version None)
Quarter: 2010Q1

REPORT INFORMATION
  Report Type: 
  Country: None (occurrence: None)
  Receive Date: 20100216
  Receipt Date: 20100208
  Transmission Date: 20100710
  Serious: Yes (Life-Threatening, Hospitalization)
  Sender: FDA-Public Use
  Company Number: DK-JNJFOC-20091106260

PATIENT
  Sex: Male

DRUGS (10)
  1. RISPERDAL [Suspect]
     Indication: PSYCHOTIC DISORDER
     Route: 048
  2. CIPRAMIL [Interacting]
     Indication: DRUG USE FOR UNKNOWN INDICATION
     Route: 065
  3. TRUXAL [Interacting]
     Indication: DRUG USE FOR UNKNOWN INDICATION
     Route: 065
  4. ZYPREXA [Suspect]
     Indication: DRUG USE FOR UNKNOWN INDICATION
     Route: 048
  5. ZYPREXA [Suspect]
     Route: 048
  6. ZYPREXA [Suspect]
     Route: 048
  7. ZYPREXA [Suspect]
     Route: 048
  8. ZYPREXA [Suspect]
     Route: 048
  9. ZYPREXA [Suspect]
     Route: 048
  10. UNKNOWN MEDICATION [Concomitant]
     Indication: DRUG USE FOR UNKNOWN INDICATION
     Route: 048

REACTIONS (6)
  - ANAPHYLACTIC REACTION [None]
  - DIZZINESS [None]
  - DRUG INTERACTION [None]
  - SKIN WARM [None]
  - THROAT TIGHTNESS [None]
  - URTICARIA [None]
